FAERS Safety Report 7087005-X (Version None)
Quarter: 2010Q4

REPORT INFORMATION
  Report Type: 
  Country: None (occurrence: None)
  Receive Date: 20101106
  Receipt Date: 20101026
  Transmission Date: 20110411
  Serious: No
  Sender: FDA-Public Use
  Company Number: US-WYE-H17668510

PATIENT
  Sex: Female
  Weight: 80.81 kg

DRUGS (9)
  1. PROTONIX [Interacting]
     Indication: GASTROOESOPHAGEAL REFLUX DISEASE
     Route: 048
  2. LOPERAMIDE HYDROCHLORIDE [Suspect]
     Indication: IRRITABLE BOWEL SYNDROME
     Route: 048
  3. OXYCODONE [Concomitant]
  4. SEROQUEL [Concomitant]
  5. NEURONTIN [Concomitant]
  6. ACETAMINOPHEN [Concomitant]
  7. CHANTIX [Interacting]
     Indication: EX-TOBACCO USER
     Route: 048
     Dates: start: 20100101, end: 20100915
  8. CHANTIX [Interacting]
     Dosage: 0.5 MG UNSPECIFIED FREQUENCY
     Dates: start: 20100701, end: 20100101
  9. MULTI-VITAMINS [Concomitant]

REACTIONS (4)
  - ABDOMINAL PAIN UPPER [None]
  - DIARRHOEA [None]
  - DRUG EFFECT DECREASED [None]
  - DRUG INTERACTION [None]
